FAERS Safety Report 13702421 (Version 1)
Quarter: 2017Q2

REPORT INFORMATION
  Report Type: Spontaneous
  Country: US (occurrence: US)
  Receive Date: 20170629
  Receipt Date: 20170629
  Transmission Date: 20170830
  Serious: No
  Sender: FDA-Public Use
  Company Number: US-IPSEN BIOPHARMACEUTICALS, INC.-2016-01045

PATIENT
  Age: 15 Year
  Sex: Male
  Weight: 56.7 kg

DRUGS (6)
  1. INCRELEX [Suspect]
     Active Substance: MECASERMIN
     Indication: BODY HEIGHT BELOW NORMAL
     Route: 058
     Dates: start: 201503
  2. VITAMIN D [Concomitant]
     Active Substance: CHOLECALCIFEROL
     Dates: start: 201508
  3. LEVOTHYROXINE. [Concomitant]
     Active Substance: LEVOTHYROXINE
     Dates: start: 201508
  4. ASACOL [Concomitant]
     Active Substance: MESALAMINE
     Dates: start: 201508
  5. INCRELEX [Suspect]
     Active Substance: MECASERMIN
     Indication: DWARFISM
     Route: 058
     Dates: start: 201407, end: 201503
  6. INCRELEX [Suspect]
     Active Substance: MECASERMIN
     Indication: PRODUCT USE IN UNAPPROVED INDICATION

REACTIONS (2)
  - Muscle hypertrophy [Unknown]
  - Weight decreased [Recovered/Resolved]

NARRATIVE: CASE EVENT DATE: 201507
